FAERS Safety Report 8222081-X (Version None)
Quarter: 2012Q1

REPORT INFORMATION
  Report Type: 
  Country: None (occurrence: None)
  Receive Date: 20120320
  Receipt Date: 20120315
  Transmission Date: 20120608
  Serious: Yes (Other)
  Sender: FDA-Public Use
  Company Number: US-JNJFOC-20120308046

PATIENT
  Age: 74 Year
  Sex: Male
  Weight: 62.14 kg

DRUGS (5)
  1. FINASTERIDE [Concomitant]
     Indication: PROSTATIC DISORDER
     Route: 065
     Dates: start: 20100101
  2. VITAMIN [Concomitant]
     Indication: ROUTINE HEALTH MAINTENANCE
     Route: 065
  3. LISTERINE TOOTH DEFENSE [Suspect]
     Indication: DENTAL DISORDER PROPHYLAXIS
     Dosage: SMALL AMOUNT, LESS THAN RECOMMENDED, 1-2 TIMES A DAY.
     Route: 048
  4. AVAPRO [Concomitant]
     Indication: HYPERTENSION
     Route: 065
     Dates: start: 20110101
  5. AMLODIPINE BESYLATE [Concomitant]
     Indication: HYPERTENSION
     Route: 065
     Dates: start: 20110101

REACTIONS (2)
  - OROPHARYNGEAL BLISTERING [None]
  - LIP BLISTER [None]
